FAERS Safety Report 9719123 (Version 1)
Quarter: 2013Q4

REPORT INFORMATION
  Report Type: Spontaneous
  Country: HU (occurrence: HU)
  Receive Date: 20131127
  Receipt Date: 20131127
  Transmission Date: 20140711
  Serious: Yes (Hospitalization, Other)
  Sender: FDA-Public Use
  Company Number: PHHY2013HU132501

PATIENT
  Age: 72 Year
  Sex: Female

DRUGS (4)
  1. BISOPROLOL [Suspect]
     Dosage: 2.5 MG, BID
  2. IRBESARTAN [Concomitant]
     Dosage: 150 MG, UNK
  3. ATORVASTATIN [Concomitant]
     Dosage: 20 MG, UNK
  4. THYROXINE [Concomitant]
     Dosage: 150 UG, UNK

REACTIONS (8)
  - Stress cardiomyopathy [Recovered/Resolved]
  - Chest pain [Unknown]
  - Dyspnoea [Unknown]
  - Dilatation ventricular [Recovered/Resolved]
  - Hypotension [Recovered/Resolved]
  - Electrocardiogram QT prolonged [Recovered/Resolved]
  - Troponin T increased [Recovered/Resolved]
  - Drug withdrawal syndrome [Recovered/Resolved]
